FAERS Safety Report 16308293 (Version 6)
Quarter: 2023Q4

REPORT INFORMATION
  Report Type: Report from Study
  Country: CA (occurrence: CA)
  Receive Date: 20190514
  Receipt Date: 20231218
  Transmission Date: 20240109
  Serious: Yes (Hospitalization, Other)
  Sender: FDA-Public Use
  Company Number: PHHY2019CA107032

PATIENT
  Age: 60 Year
  Sex: Female

DRUGS (4)
  1. COSENTYX [Suspect]
     Active Substance: SECUKINUMAB
     Indication: Ankylosing spondylitis
     Dosage: 150 MG, QW
     Route: 058
     Dates: start: 20190418
  2. COSENTYX [Suspect]
     Active Substance: SECUKINUMAB
     Dosage: 150 MG, QMO
     Route: 058
     Dates: start: 20190418
  3. MELOXICAM [Concomitant]
     Active Substance: MELOXICAM
     Indication: Product used for unknown indication
     Dosage: 1 DF, QD
     Route: 048
     Dates: start: 2017
  4. CELEBREX [Concomitant]
     Active Substance: CELECOXIB
     Indication: Product used for unknown indication
     Dosage: 1 DF, QD
     Route: 048

REACTIONS (5)
  - Platelet count decreased [Recovering/Resolving]
  - Diverticulitis [Unknown]
  - Herpes zoster [Unknown]
  - Blister [Recovered/Resolved]
  - Neuralgia [Unknown]

NARRATIVE: CASE EVENT DATE: 20190424
